FAERS Safety Report 4645035-9 (Version None)
Quarter: 2005Q2

REPORT INFORMATION
  Report Type: 
  Country: None (occurrence: None)
  Receive Date: 20050426
  Receipt Date: 20050317
  Transmission Date: 20051028
  Serious: Yes (Hospitalization)
  Sender: FDA-Public Use
  Company Number: DE-AMGEN-UK121313

PATIENT
  Sex: Female

DRUGS (13)
  1. AMG 099073 [Suspect]
     Indication: HYPERPARATHYROIDISM SECONDARY
     Route: 048
     Dates: start: 20041025, end: 20050116
  2. ACETYL SALICYLIC ACID USP BAT [Suspect]
     Route: 048
  3. PHOSPHONORM [Concomitant]
     Route: 048
  4. FUROSEMIDE [Concomitant]
     Route: 048
  5. CALCITRIOL [Concomitant]
     Route: 048
  6. CIPROFLOXACIN [Concomitant]
     Route: 048
  7. MULTI-VITAMINS [Concomitant]
     Route: 048
  8. CALCIUM CARBONATE [Concomitant]
     Route: 048
  9. TRAMADOL HCL [Concomitant]
     Route: 048
  10. IRON [Concomitant]
     Route: 048
  11. SIMVASTATIN [Concomitant]
     Route: 048
  12. CLOBUTINOL HYDROCHLORIDE [Concomitant]
     Route: 065
  13. ARANESP [Concomitant]
     Route: 065

REACTIONS (2)
  - GASTRITIS EROSIVE [None]
  - GASTROENTERITIS VIRAL [None]
